FAERS Safety Report 4566671-4 (Version None)
Quarter: 2005Q1

REPORT INFORMATION
  Report Type: 
  Country: None (occurrence: None)
  Receive Date: 20050201
  Receipt Date: 20041229
  Transmission Date: 20050727
  Serious: Yes (Hospitalization)
  Sender: FDA-Public Use
  Company Number: US-MERCK-0412USA03290

PATIENT
  Age: 55 Year
  Sex: Male

DRUGS (7)
  1. VIOXX [Suspect]
     Route: 048
  2. CARDIZEM [Concomitant]
     Route: 065
  3. EPOGEN [Concomitant]
     Route: 065
  4. IMDUR [Concomitant]
     Route: 065
  5. NORMODYNE [Concomitant]
     Route: 065
  6. ZANTAC [Concomitant]
     Route: 065
  7. ZOLOFT [Concomitant]
     Route: 065

REACTIONS (15)
  - ADVERSE EVENT [None]
  - ANGINA UNSTABLE [None]
  - ANGIODYSPLASIA [None]
  - CARDIAC FAILURE CONGESTIVE [None]
  - CORONARY ARTERY DISEASE [None]
  - CORONARY ARTERY STENOSIS [None]
  - DIVERTICULUM INTESTINAL [None]
  - ENCEPHALOPATHY [None]
  - HAEMORRHOIDS [None]
  - HYPERTENSION [None]
  - ISCHAEMIC CARDIOMYOPATHY [None]
  - MYOCARDIAL INFARCTION [None]
  - PERIPHERAL VASCULAR DISORDER [None]
  - UPPER GASTROINTESTINAL HAEMORRHAGE [None]
  - VENTRICULAR DYSFUNCTION [None]
